FAERS Safety Report 15952745 (Version 3)
Quarter: 2019Q1

REPORT INFORMATION
  Report Type: Report from Study
  Country: CA (occurrence: CA)
  Receive Date: 20190211
  Receipt Date: 20190327
  Transmission Date: 20190417
  Serious: Yes (Hospitalization, Other)
  Sender: FDA-Public Use
  Company Number: CA-BRISTOL-MYERS SQUIBB COMPANY-BMS-2018-026154

PATIENT
  Age: 71 Year
  Sex: Male

DRUGS (1)
  1. ABATACEPT [Suspect]
     Active Substance: ABATACEPT
     Indication: RHEUMATOID ARTHRITIS
     Dosage: 750 MG, QMO
     Route: 042
     Dates: start: 20180301

REACTIONS (12)
  - Influenza [Unknown]
  - Fall [Recovering/Resolving]
  - Gastrointestinal disorder [Unknown]
  - Genital swelling [Unknown]
  - Gastric disorder [Unknown]
  - Skin laceration [Unknown]
  - Fungal infection [Recovering/Resolving]
  - Oropharyngeal discomfort [Unknown]
  - Vein rupture [Recovered/Resolved]
  - Pharyngitis [Unknown]
  - Infection [Recovered/Resolved]
  - Constipation [Unknown]

NARRATIVE: CASE EVENT DATE: 20180319
